FAERS Safety Report 4796215-3 (Version None)
Quarter: 2005Q4

REPORT INFORMATION
  Report Type: 
  Country: None (occurrence: None)
  Receive Date: 20051007
  Receipt Date: 20050929
  Transmission Date: 20060501
  Serious: Yes (Hospitalization, Disabling, Other)
  Sender: FDA-Public Use
  Company Number: 2005135352

PATIENT
  Age: 56 Year
  Sex: Female
  Weight: 53.978 kg

DRUGS (14)
  1. NEURONTIN [Suspect]
     Indication: FACIAL PAIN
     Dosage: (400 MG), ORAL
     Route: 048
  2. GABAPENTIN [Suspect]
     Indication: FACIAL PAIN
     Dosage: (400 MG), ORAL
     Route: 048
     Dates: start: 20050101
  3. ALPRAZOLAM [Concomitant]
  4. ALBUTEROL SULFATE/IPRATROPIOUM BROMIDE (IPRATROPIUM BROMIDE, SALBUTAMO [Concomitant]
  5. ALBUTEROL [Concomitant]
  6. ADVAIR DISKUS 100/50 [Concomitant]
  7. PROTONIX (PANTORPRAZOLE) [Concomitant]
  8. TEGRETOL (TEGRETOL (CARBAMAZEPINE) [Concomitant]
  9. DILANTIN [Concomitant]
  10. CLARINEX [Concomitant]
  11. TOPROLOL (METOPROLOL) [Concomitant]
  12. ELAVIL [Concomitant]
  13. TESSALON (ZOLPIDEM TARTRATE) [Concomitant]
  14. ZOLOFT [Concomitant]

REACTIONS (9)
  - ASTHMA [None]
  - CHRONIC OBSTRUCTIVE PULMONARY DISEASE [None]
  - FACIAL PAIN [None]
  - INADEQUATE ANALGESIA [None]
  - MEMORY IMPAIRMENT [None]
  - PAROSMIA [None]
  - THERAPEUTIC RESPONSE UNEXPECTED WITH DRUG SUBSTITUTION [None]
  - THERAPY NON-RESPONDER [None]
  - WEIGHT INCREASED [None]
